FAERS Safety Report 5176383-4 (Version None)
Quarter: 2006Q4

REPORT INFORMATION
  Report Type: 
  Country: None (occurrence: None)
  Receive Date: 20061207
  Receipt Date: 20061128
  Transmission Date: 20070319
  Serious: Yes (Death, Other)
  Sender: FDA-Public Use
  Company Number: 2006JP004945

PATIENT
  Age: 19 Year
  Sex: Male

DRUGS (3)
  1. PROGRAF [Suspect]
     Indication: BONE MARROW TRANSPLANT
     Dosage: UNKNOWN
  2. METHOTREXATE (METHOTREXATE SODIUM) [Concomitant]
  3. CYCLOPHOSPHAMIDE [Concomitant]

REACTIONS (9)
  - ACUTE GRAFT VERSUS HOST DISEASE IN INTESTINE [None]
  - BLOOD PRESSURE DECREASED [None]
  - CYSTITIS HAEMORRHAGIC [None]
  - CYTOMEGALOVIRUS ENTEROCOLITIS [None]
  - DISEASE PROGRESSION [None]
  - IMMUNOSUPPRESSION [None]
  - INFECTION [None]
  - RENAL FAILURE CHRONIC [None]
  - THROMBOTIC MICROANGIOPATHY [None]
